FAERS Safety Report 15664808 (Version 2)
Quarter: 2018Q4

REPORT INFORMATION
  Report Type: Spontaneous
  Country: US (occurrence: US)
  Receive Date: 20181128
  Receipt Date: 20181211
  Transmission Date: 20190205
  Serious: Yes (Disabling, Other)
  Sender: FDA-Public Use
  Company Number: US-VERICEL CORPORATION-VCEL-2018-000539

PATIENT
  Age: 49 Year
  Sex: Male

DRUGS (1)
  1. MACI [Suspect]
     Active Substance: AUTOLOGOUS CULTURED CHONDROCYTES\SUS SCROFA COLLAGEN
     Indication: CARTILAGE INJURY
     Dosage: UNKNOWN
     Dates: start: 20171122

REACTIONS (5)
  - Deep vein thrombosis [Unknown]
  - Treatment failure [Unknown]
  - Procedural pain [Unknown]
  - Gait inability [Unknown]
  - Bone marrow oedema [Unknown]

NARRATIVE: CASE EVENT DATE: 201805
